FAERS Safety Report 5868715-6 (Version None)
Quarter: 2008Q3

REPORT INFORMATION
  Report Type: 
  Country: None (occurrence: None)
  Receive Date: 20080903
  Receipt Date: 20080826
  Transmission Date: 20090109
  Serious: Yes (Hospitalization)
  Sender: FDA-Public Use
  Company Number: US-EISAI MEDICAL RESEARCH-E2020-03242-SPO-US

PATIENT
  Age: 77 Year
  Sex: Female

DRUGS (8)
  1. ARICEPT [Suspect]
     Indication: DEMENTIA ALZHEIMER'S TYPE
     Route: 048
     Dates: start: 20070104, end: 20080806
  2. ANAESTHETICS [Interacting]
     Indication: SURGERY
     Dosage: UNKNOWN
     Route: 065
     Dates: start: 20080731, end: 20080731
  3. SYNTHROID [Concomitant]
     Indication: HYPOTHYROIDISM
     Route: 048
  4. PREDNISONE TAB [Concomitant]
     Route: 048
  5. NAMENDA [Concomitant]
     Indication: DEMENTIA ALZHEIMER'S TYPE
     Route: 048
  6. DARVACET [Concomitant]
  7. ALEVE [Concomitant]
  8. PROTONIX [Concomitant]

REACTIONS (3)
  - ASTHENIA [None]
  - DRUG INTERACTION [None]
  - PERFORATED ULCER [None]
